FAERS Safety Report 7532410-8 (Version None)
Quarter: 2011Q2

REPORT INFORMATION
  Report Type: 
  Country: None (occurrence: None)
  Receive Date: 20110607
  Receipt Date: 20110607
  Transmission Date: 20111010
  Serious: Yes (Death)
  Sender: FDA-Public Use
  Company Number: None

PATIENT
  Age: 66 Year
  Sex: Female

DRUGS (9)
  1. LOSARTAN POTASSIUM [Concomitant]
  2. ALENDRONATE SODIUM [Concomitant]
  3. MEGESTROL ACETATE [Concomitant]
  4. REVLIMID [Suspect]
     Indication: MULTIPLE MYELOMA
     Dosage: REVLIMID 5MG  DAILY X21D/28D ORALLY
     Route: 048
     Dates: start: 20110401
  5. BUMETANIDE [Concomitant]
  6. CLONIDINE [Concomitant]
  7. METOLAZONE [Concomitant]
  8. HYDROCODONE BITARTRATE AND ACETAMINOPHEN [Concomitant]
  9. METOPROLOL [Concomitant]

REACTIONS (1)
  - LUNG NEOPLASM MALIGNANT [None]
